FAERS Safety Report 6436154-5 (Version None)
Quarter: 2009Q4

REPORT INFORMATION
  Report Type: 
  Country: None (occurrence: None)
  Receive Date: 20091111
  Receipt Date: 20091106
  Transmission Date: 20100525
  Serious: Yes (Death, Hospitalization)
  Sender: FDA-Public Use
  Company Number: CA-ROCHE-638753

PATIENT
  Sex: Female
  Weight: 78.3 kg

DRUGS (5)
  1. CAPECITABINE [Suspect]
     Indication: COLORECTAL CANCER
     Dosage: FORM: PILL, FREQUENCY: G/2HX140
     Route: 048
     Dates: start: 20090504
  2. HYDROCHLOROTHIAZIDE [Concomitant]
     Dates: start: 20040101, end: 20090617
  3. FOSAVANCE [Concomitant]
     Dates: start: 20040101, end: 20090617
  4. PREVACID [Concomitant]
     Dates: start: 19990101, end: 20090617
  5. ATACAND [Concomitant]
     Dates: start: 20060101, end: 20090617

REACTIONS (3)
  - ATRIAL FIBRILLATION [None]
  - CARDIAC ARREST [None]
  - METASTATIC NEOPLASM [None]
